FAERS Safety Report 6336485-3 (Version None)
Quarter: 2009Q3

REPORT INFORMATION
  Report Type: 
  Country: None (occurrence: None)
  Receive Date: 20090901
  Receipt Date: 20090828
  Transmission Date: 20100115
  Serious: Yes (Disabling)
  Sender: FDA-Public Use
  Company Number: B0587262A

PATIENT
  Sex: Female

DRUGS (2)
  1. IMIGRAN [Suspect]
     Route: 065
  2. SYMBICORT [Concomitant]
     Indication: ASTHMA PROPHYLAXIS

REACTIONS (5)
  - BLINDNESS UNILATERAL [None]
  - CEREBROVASCULAR ACCIDENT [None]
  - OVERDOSE [None]
  - VASCULAR INJURY [None]
  - VISUAL IMPAIRMENT [None]
